FAERS Safety Report 4294191-3 (Version None)
Quarter: 2004Q1

REPORT INFORMATION
  Report Type: 
  Country: None (occurrence: None)
  Receive Date: 20040211
  Receipt Date: 20040129
  Transmission Date: 20041129
  Serious: Yes (Other)
  Sender: FDA-Public Use
  Company Number: 2004006378

PATIENT
  Age: 38 Year
  Sex: Female
  Weight: 79.3795 kg

DRUGS (8)
  1. DILANTIN [Suspect]
     Indication: CONVULSION
     Dosage: 500 MG (BID), ORAL
     Route: 048
     Dates: start: 20031207
  2. ZITHROMAX [Suspect]
     Indication: EAR INFECTION
     Dosage: 500 MG (DAILY), ORAL
     Route: 048
     Dates: start: 20040121, end: 20040123
  3. ZITHROMAX [Suspect]
     Indication: SINUSITIS
     Dosage: 500 MG (DAILY), ORAL
     Route: 048
     Dates: start: 20040121, end: 20040123
  4. LEVOTHYROXINE SODIUM [Concomitant]
  5. GABAPENTIN [Concomitant]
  6. HYDROCHLOROTHIAZIDE [Concomitant]
  7. MECLOZINE (MECLOZINE) [Concomitant]
  8. BACLOFEN [Concomitant]

REACTIONS (13)
  - ASTHENIA [None]
  - DRUG INTERACTION [None]
  - DRUG LEVEL DECREASED [None]
  - EAR DISORDER [None]
  - EAR INFECTION [None]
  - FEELING ABNORMAL [None]
  - GRAND MAL CONVULSION [None]
  - MENTAL IMPAIRMENT [None]
  - PETIT MAL EPILEPSY [None]
  - SENSATION OF BLOCK IN EAR [None]
  - SENSATION OF PRESSURE IN EAR [None]
  - SINUSITIS [None]
  - VESTIBULAR DISORDER [None]
